FAERS Safety Report 17221119 (Version 1)
Quarter: 2019Q4

REPORT INFORMATION
  Report Type: Spontaneous
  Country: US (occurrence: US)
  Receive Date: 20191231
  Receipt Date: 20191231
  Transmission Date: 20200122
  Serious: No
  Sender: FDA-Public Use
  Company Number: US-FOUNDATIONCONSUMERHC-2019-US-017158

PATIENT
  Sex: Female

DRUGS (1)
  1. LEVONORGESTREL (UNSPECIFIED) [Suspect]
     Active Substance: LEVONORGESTREL
     Indication: PRODUCT USED FOR UNKNOWN INDICATION
     Dosage: UNKNOWN
     Route: 065

REACTIONS (5)
  - Nausea [Unknown]
  - Vaginal haemorrhage [Unknown]
  - Abdominal pain lower [Unknown]
  - Fatigue [Unknown]
  - Headache [Unknown]
